FAERS Safety Report 4469784-0 (Version None)
Quarter: 2004Q4

REPORT INFORMATION
  Report Type: 
  Country: None (occurrence: None)
  Receive Date: 20041008
  Receipt Date: 20040927
  Transmission Date: 20050328
  Serious: Yes (Hospitalization)
  Sender: FDA-Public Use
  Company Number: US-ROCHE-381484

PATIENT
  Age: 61 Year
  Sex: Male
  Weight: 52.6 kg

DRUGS (10)
  1. PEG-INTERFERON ALFA 2A (RO 25-8310) [Suspect]
     Route: 058
     Dates: start: 20040803
  2. RIBAVIRIN [Suspect]
     Dosage: 2 TABLETS TAKEN TWICE A DAY (BID).
     Route: 048
     Dates: start: 20040803
  3. NOVOLIN 70/30 [Concomitant]
     Dates: start: 20020615
  4. NOVOLIN R [Concomitant]
     Dosage: SLIDING SCALE DOSE REPORTED.
     Dates: start: 20020615
  5. LISINOPRIL [Concomitant]
     Dates: start: 20020615
  6. MARIJUANA [Concomitant]
     Dates: start: 19890615
  7. AMITRIPTYLINE HCL [Concomitant]
     Dates: start: 20040716
  8. GLUCERNA [Concomitant]
     Dosage: 2 CANS TAKEN DAILY. FORMULATION: LIQUID.
     Dates: start: 20040801
  9. EFFEXOR [Concomitant]
     Dates: start: 20040817
  10. COMPAZINE [Concomitant]
     Dates: start: 20040831

REACTIONS (4)
  - CLAVICLE FRACTURE [None]
  - FALL [None]
  - HYPOGLYCAEMIA [None]
  - SYNCOPE [None]
